FAERS Safety Report 10173315 (Version 1)
Quarter: 2014Q2

REPORT INFORMATION
  Report Type: Spontaneous
  Country: CN (occurrence: CN)
  Receive Date: 20140515
  Receipt Date: 20140515
  Transmission Date: 20141212
  Serious: Yes (Other)
  Sender: FDA-Public Use
  Company Number: CN-BAXTER-2014BAX023340

PATIENT
  Age: 15 Year
  Sex: Female
  Weight: 54 kg

DRUGS (3)
  1. 0.9% SODIUM CHLORIDE INJECTION [Suspect]
     Indication: MEDICATION DILUTION
     Route: 041
     Dates: start: 20130829, end: 20130830
  2. LENTINAN [Suspect]
     Indication: IMMUNOMODULATORY THERAPY
     Route: 041
     Dates: start: 20130829, end: 20130830
  3. LENTINAN [Suspect]
     Route: 041
     Dates: start: 20130830

REACTIONS (1)
  - Rash [Recovering/Resolving]
